FAERS Safety Report 14511895 (Version 1)
Quarter: 2018Q1

REPORT INFORMATION
  Report Type: Spontaneous
  Country: FR (occurrence: FR)
  Receive Date: 20180209
  Receipt Date: 20180209
  Transmission Date: 20180509
  Serious: Yes (Death)
  Sender: FDA-Public Use
  Company Number: FR-JNJFOC-20180210611

PATIENT
  Age: 67 Year
  Sex: Male
  Weight: 67 kg

DRUGS (8)
  1. DUROGESIC [Suspect]
     Active Substance: FENTANYL
     Indication: ARTHRALGIA
     Route: 062
     Dates: start: 201705
  2. LANSOYL [Concomitant]
     Active Substance: MINERAL OIL
     Route: 048
  3. ALEPSAL (PHENOBARBITAL) [Concomitant]
     Active Substance: PHENOBARBITAL
     Indication: EPILEPSY
     Route: 048
  4. CETIRIZINE [Concomitant]
     Active Substance: CETIRIZINE HYDROCHLORIDE
     Route: 048
  5. PARACETAMOL [Concomitant]
     Active Substance: ACETAMINOPHEN
     Indication: PAIN
     Route: 048
  6. PANTOPRAZOLE [Concomitant]
     Active Substance: PANTOPRAZOLE
     Route: 048
  7. LEVOTHYROX [Concomitant]
     Active Substance: LEVOTHYROXINE
     Indication: HYPOTHYROIDISM
     Route: 048
  8. GLUCOSE [Concomitant]
     Active Substance: DEXTROSE
     Route: 058

REACTIONS (3)
  - Coma [Fatal]
  - Respiratory distress [Fatal]
  - Lung disorder [Fatal]

NARRATIVE: CASE EVENT DATE: 20170814
